FAERS Safety Report 22532687 (Version 1)
Quarter: 2023Q2

REPORT INFORMATION
  Report Type: Report from Study
  Country: NL (occurrence: NL)
  Receive Date: 20230607
  Receipt Date: 20230607
  Transmission Date: 20230721
  Serious: Yes (Other)
  Sender: FDA-Public Use
  Company Number: NL-002147023-NVSC2020NL106580

PATIENT
  Sex: Male

DRUGS (1)
  1. ZOMETA [Suspect]
     Active Substance: ZOLEDRONIC ACID
     Indication: Renal cell carcinoma
     Dosage: 1 DF (4 WEEKS)
     Route: 042

REACTIONS (2)
  - Terminal state [Unknown]
  - Product use in unapproved indication [Unknown]
